FAERS Safety Report 9251604 (Version 1)
Quarter: 2013Q2

REPORT INFORMATION
  Report Type: Spontaneous
  Country: NZ (occurrence: NZ)
  Receive Date: 20130424
  Receipt Date: 20130424
  Transmission Date: 20140414
  Serious: Yes (Hospitalization, Other)
  Sender: FDA-Public Use
  Company Number: PHHY2013NZ039668

PATIENT
  Sex: Male

DRUGS (2)
  1. VOLTAREN [Suspect]
     Indication: ANALGESIC THERAPY
  2. IBUPROFEN [Suspect]
     Indication: ANALGESIC THERAPY

REACTIONS (7)
  - Coma hepatic [Unknown]
  - Coma [Unknown]
  - Fall [Unknown]
  - Malaise [Unknown]
  - Hepatic failure [Unknown]
  - Haematemesis [Unknown]
  - Weight decreased [Unknown]
